FAERS Safety Report 13872529 (Version 1)
Quarter: 2017Q3

REPORT INFORMATION
  Report Type: Report from Study
  Country: JP (occurrence: JP)
  Receive Date: 20170816
  Receipt Date: 20170816
  Transmission Date: 20171127
  Serious: Yes (Death, Other)
  Sender: FDA-Public Use
  Company Number: JP-SHIRE-JP201713011

PATIENT
  Age: 62 Year
  Sex: Male

DRUGS (15)
  1. 405 (LANTHANUM CARBONATE) [Suspect]
     Active Substance: LANTHANUM CARBONATE
     Indication: HYPERPHOSPHATAEMIA
     Dosage: 750 MG, UNKNOWN
     Route: 048
     Dates: start: 20100203
  2. OXAROL [Concomitant]
     Active Substance: MAXACALCITOL
     Dosage: 5 ?G, 1X/WEEK
     Route: 042
     Dates: start: 20120815, end: 20121003
  3. OXAROL [Concomitant]
     Active Substance: MAXACALCITOL
     Dosage: 10 ?G, 1X/WEEK
     Route: 042
     Dates: start: 20130610, end: 20161206
  4. NORVASC [Concomitant]
     Active Substance: AMLODIPINE BESYLATE
     Indication: PRODUCT USED FOR UNKNOWN INDICATION
     Dosage: 5 MG, UNKNOWN
     Route: 048
  5. MUCOSTA [Concomitant]
     Active Substance: REBAMIPIDE
     Indication: PRODUCT USED FOR UNKNOWN INDICATION
     Dosage: 300 MG, UNKNOWN
     Route: 048
  6. RENAGEL [Concomitant]
     Active Substance: SEVELAMER HYDROCHLORIDE
     Indication: HYPERPHOSPHATAEMIA
     Dosage: 1.5 G, UNKNOWN
     Route: 048
     Dates: end: 20161112
  7. OXAROL [Concomitant]
     Active Substance: MAXACALCITOL
     Indication: PRODUCT USED FOR UNKNOWN INDICATION
     Dosage: 30 ?G, 1X/WEEK
     Route: 042
     Dates: start: 20120210, end: 20120601
  8. OXAROL [Concomitant]
     Active Substance: MAXACALCITOL
     Dosage: 5 ?G, 1X/WEEK
     Route: 042
     Dates: end: 20120813
  9. OXAROL [Concomitant]
     Active Substance: MAXACALCITOL
     Dosage: 20 ?G, 1X/WEEK
     Route: 042
     Dates: start: 20120817, end: 20130607
  10. PRERAN [Concomitant]
     Active Substance: TRANDOLAPRIL
     Indication: PRODUCT USED FOR UNKNOWN INDICATION
     Dosage: 1 MG, UNKNOWN
     Route: 048
     Dates: end: 201004
  11. PRECIPITATED CALCIUM CARBONATE [Concomitant]
     Active Substance: CALCIUM CARBONATE
     Indication: PRODUCT USED FOR UNKNOWN INDICATION
     Dosage: 500 MG, UNKNOWN
     Route: 048
     Dates: start: 20120229, end: 20161112
  12. 405 (LANTHANUM CARBONATE) [Suspect]
     Active Substance: LANTHANUM CARBONATE
     Indication: HYPERPHOSPHATAEMIA
     Dosage: 750 MG, UNKNOWN
     Route: 048
     Dates: end: 20161112
  13. REGPARA [Concomitant]
     Active Substance: CINACALCET HYDROCHLORIDE
     Indication: PRODUCT USED FOR UNKNOWN INDICATION
     Dosage: 25 MG, UNKNOWN
     Route: 048
     Dates: end: 20161112
  14. TAKEPRON [Concomitant]
     Active Substance: LANSOPRAZOLE
     Indication: PRODUCT USED FOR UNKNOWN INDICATION
     Dosage: 30 MG, UNKNOWN
     Route: 048
  15. NESP [Concomitant]
     Active Substance: DARBEPOETIN ALFA
     Indication: PRODUCT USED FOR UNKNOWN INDICATION
     Dosage: 40 ?G, UNKNOWN
     Route: 042
     Dates: start: 20100108

REACTIONS (10)
  - Hypertension [Recovering/Resolving]
  - Hepatic cirrhosis [Fatal]
  - Constipation [Recovered/Resolved]
  - Upper respiratory tract inflammation [Recovering/Resolving]
  - Arthralgia [Recovering/Resolving]
  - Hyperparathyroidism [Recovering/Resolving]
  - Iron deficiency [Recovered/Resolved]
  - Chronic gastritis [Recovering/Resolving]
  - Ascites [Fatal]
  - Pruritus [Recovering/Resolving]

NARRATIVE: CASE EVENT DATE: 20100407
